FAERS Safety Report 8507686-0 (Version None)
Quarter: 2012Q3

REPORT INFORMATION
  Report Type: 
  Country: None (occurrence: None)
  Receive Date: 20120713
  Receipt Date: 20120608
  Transmission Date: 20120928
  Serious: Yes (Life-Threatening, Hospitalization)
  Sender: FDA-Public Use
  Company Number: TR-MILLENNIUM PHARMACEUTICALS, INC.-2012-03743

PATIENT
  Sex: Male

DRUGS (12)
  1. VELCADE [Suspect]
     Indication: MULTIPLE MYELOMA
     Dosage: UNK
     Route: 042
     Dates: start: 20111222, end: 20120312
  2. DEXAMETHASONE SODIUM POSPHATE [Concomitant]
     Indication: MULTIPLE MYELOMA
     Dosage: UNK
     Dates: start: 20111222, end: 20111222
  3. CLARITHROMYCIN [Concomitant]
     Dosage: UNK
     Dates: start: 20120226
  4. MOXIFLOXACIN [Concomitant]
     Dosage: UNK
     Dates: start: 20120305
  5. VELCADE [Suspect]
     Dosage: UNK
     Dates: start: 20120322
  6. ZOMETA [Concomitant]
     Dosage: UNK
     Dates: start: 20110914
  7. TAZOBACTAM [Concomitant]
     Dosage: UNK
     Dates: start: 20120305
  8. METHYLPREDNISOLONE [Concomitant]
     Dosage: UNK
     Dates: start: 20120305, end: 20120309
  9. CEFTRIAXONE [Concomitant]
     Dosage: UNK
     Dates: start: 20120226
  10. FORMOTEROL FUMARATE [Concomitant]
     Dosage: UNK
     Dates: start: 20120305
  11. TIOTROPIUM BROMIDE [Concomitant]
     Dosage: UNK
     Dates: start: 20120305
  12. DEXAMETHASONE SODIUM POSPHATE [Concomitant]
     Dosage: UNK
     Dates: start: 20120322

REACTIONS (1)
  - ASTHMA [None]
